FAERS Safety Report 26035917 (Version 3)
Quarter: 2025Q4

REPORT INFORMATION
  Report Type: Report from Study
  Country: US (occurrence: US)
  Receive Date: 20251112
  Receipt Date: 20251205
  Transmission Date: 20260117
  Serious: Yes (Other)
  Sender: MALLINCKRODT
  Company Number: US-MALLINCKRODT-MNK202506894

PATIENT
  Age: 70 Year
  Sex: Female

DRUGS (1)
  1. CORTICOTROPIN [Suspect]
     Active Substance: CORTICOTROPIN
     Indication: Keratitis
     Dosage: 80 UNITS
     Route: 058
     Dates: start: 20251102

REACTIONS (7)
  - Keratitis [Unknown]
  - Condition aggravated [Unknown]
  - Eye operation [Recovering/Resolving]
  - Anxiety [Unknown]
  - Injection site pain [Unknown]
  - Injection site pruritus [Recovering/Resolving]
  - Drug ineffective [Unknown]

NARRATIVE: CASE EVENT DATE: 20250101
